FAERS Safety Report 4811520-X (Version None)
Quarter: 2005Q4

REPORT INFORMATION
  Report Type: 
  Country: None (occurrence: None)
  Receive Date: 20051025
  Receipt Date: 20051010
  Transmission Date: 20060501
  Serious: Yes (Hospitalization, Disabling)
  Sender: FDA-Public Use
  Company Number: 2005-01268

PATIENT
  Age: 71 Year
  Sex: Male
  Weight: 75 kg

DRUGS (13)
  1. VELCADE [Suspect]
     Indication: MULTIPLE MYELOMA
     Dosage: 2.60 MG, UNK, INTRAVENOUS; 1.30 MG, UNK, INTRAVENOUS
     Route: 042
     Dates: start: 20050125, end: 20050331
  2. VELCADE [Suspect]
     Indication: MULTIPLE MYELOMA
     Dosage: 2.60 MG, UNK, INTRAVENOUS; 1.30 MG, UNK, INTRAVENOUS
     Route: 042
     Dates: start: 20050331, end: 20050421
  3. VELCADE [Suspect]
  4. PREDNISONE [Suspect]
     Indication: MULTIPLE MYELOMA
     Dosage: UNKNOWN
     Route: 065
  5. MORPHINE [Concomitant]
  6. RANITIDINE [Concomitant]
  7. MORPHINE SULFATE [Concomitant]
  8. NEURONTIN [Concomitant]
  9. DIPYRONE TAB [Concomitant]
  10. ANDROCUR (CYPROTERONE ACETATE) [Concomitant]
  11. NEORECORMON (EPOETIN BETA) [Concomitant]
  12. ACYCLOVIR [Concomitant]
  13. PROFACT - SLOW RELEASE (BUSERELIN ACETATE) [Concomitant]

REACTIONS (9)
  - ARTHRALGIA [None]
  - CARPAL TUNNEL SYNDROME [None]
  - CEREBRAL INFARCTION [None]
  - HERPES ZOSTER [None]
  - JOINT RANGE OF MOTION DECREASED [None]
  - MONOPLEGIA [None]
  - PAIN IN EXTREMITY [None]
  - REFUSAL OF TREATMENT BY PATIENT [None]
  - SPINAL MYELOGRAM ABNORMAL [None]
